FAERS Safety Report 11923824 (Version 1)
Quarter: 2016Q1

REPORT INFORMATION
  Report Type: Report from Study
  Country: FR (occurrence: FR)
  Receive Date: 20160118
  Receipt Date: 20160118
  Transmission Date: 20160526
  Serious: Yes (Death, Other)
  Sender: FDA-Public Use
  Company Number: FR-BRISTOL-MYERS SQUIBB COMPANY-BMS-2015-018133

PATIENT
  Age: 75 Year
  Sex: Male
  Weight: 53 kg

DRUGS (6)
  1. NIVOLUMAB [Suspect]
     Active Substance: NIVOLUMAB
     Indication: MALIGNANT MELANOMA
     Dosage: 159 MG, UNK
     Route: 042
     Dates: start: 20150218
  2. FLECAINE [Concomitant]
     Active Substance: FLECAINIDE
     Indication: ATRIAL FIBRILLATION
  3. BACTRIM [Concomitant]
     Active Substance: SULFAMETHOXAZOLE\TRIMETHOPRIM
     Indication: PRODUCT USED FOR UNKNOWN INDICATION
     Dosage: 1 DF, QD
     Route: 048
     Dates: start: 20140101, end: 20150710
  4. FLECAINE [Concomitant]
     Active Substance: FLECAINIDE
     Indication: ARRHYTHMIA
     Dosage: 100 MG, QD
     Route: 048
     Dates: start: 20140110, end: 20150710
  5. IPILIMUMAB [Suspect]
     Active Substance: IPILIMUMAB
     Indication: PRODUCT USED FOR UNKNOWN INDICATION
     Route: 065
  6. LEDERFOLINE [Concomitant]
     Active Substance: LEUCOVORIN CALCIUM
     Indication: PRODUCT USED FOR UNKNOWN INDICATION
     Dosage: 15 MG, QD
     Route: 048
     Dates: start: 20140101, end: 20150710

REACTIONS (9)
  - Blood thyroid stimulating hormone [Unknown]
  - Thrombocytopenia [Not Recovered/Not Resolved]
  - Blood creatinine abnormal [Unknown]
  - Lymphocyte count abnormal [Unknown]
  - Respiratory distress [Fatal]
  - Blood electrolytes abnormal [Unknown]
  - Neutrophil count [Unknown]
  - Hypothyroidism [Unknown]
  - Haemoglobin abnormal [Unknown]

NARRATIVE: CASE EVENT DATE: 20141023
